FAERS Safety Report 16634223 (Version 2)
Quarter: 2019Q4

REPORT INFORMATION
  Report Type: Spontaneous
  Country: US (occurrence: US)
  Receive Date: 20190726
  Receipt Date: 20191001
  Transmission Date: 20200122
  Serious: No
  Sender: FDA-Public Use
  Company Number: US-BIOGEN-2019BI00765469

PATIENT
  Sex: Male

DRUGS (1)
  1. AVONEX [Suspect]
     Active Substance: INTERFERON BETA-1A
     Indication: MULTIPLE SCLEROSIS
     Route: 030
     Dates: start: 20020126, end: 20041104

REACTIONS (6)
  - Musculoskeletal disorder [Not Recovered/Not Resolved]
  - Feeling cold [Unknown]
  - Hyperhidrosis [Unknown]
  - Memory impairment [Unknown]
  - Tremor [Unknown]
  - Feeling abnormal [Unknown]
